FAERS Safety Report 20506133 (Version 4)
Quarter: 2023Q1

REPORT INFORMATION
  Report Type: Spontaneous
  Country: US (occurrence: US)
  Receive Date: 20220223
  Receipt Date: 20230208
  Transmission Date: 20230417
  Serious: Yes (Other)
  Sender: FDA-Public Use
  Company Number: US-PHARMAESSENTIA CORPORATION-US-2021-PEC-000459

PATIENT

DRUGS (7)
  1. BESREMI [Suspect]
     Active Substance: ROPEGINTERFERON ALFA-2B-NJFT
     Indication: Essential thrombocythaemia
     Dosage: 50 MICROGRAM, Q2W
     Route: 058
     Dates: start: 20211217, end: 20211217
  2. ASPIRIN [Concomitant]
     Active Substance: ASPIRIN
     Indication: Thrombosis
     Dosage: 80 MILLIGRAM, QD
     Route: 048
  3. ASPIRIN [Concomitant]
     Active Substance: ASPIRIN
     Indication: Analgesic therapy
  4. NITRO-BID [Concomitant]
     Active Substance: NITROGLYCERIN
     Indication: Analgesic therapy
     Route: 061
  5. GENTEAL TEARS [HYPROMELLOSE] [Concomitant]
     Indication: Dry eye
     Dosage: 1 DROP, TID
     Route: 065
  6. SYSTANE NIGHTTIME [Concomitant]
     Active Substance: MINERAL OIL\PETROLATUM
     Indication: Dry eye
     Dosage: UNK, QD ONCE PER NIGHT
     Route: 065
  7. FISH OIL [COD-LIVER OIL] [Concomitant]
     Indication: Dry eye
     Route: 065

REACTIONS (15)
  - Intestinal haemorrhage [Unknown]
  - Haemoglobin decreased [Unknown]
  - Retinal tear [Unknown]
  - Neuralgia [Unknown]
  - Heart rate increased [Not Recovered/Not Resolved]
  - Peripheral swelling [Unknown]
  - Eye irritation [Recovering/Resolving]
  - Insomnia [Not Recovered/Not Resolved]
  - Diarrhoea [Unknown]
  - Nasal congestion [Unknown]
  - Abdominal pain upper [Unknown]
  - Arthralgia [Unknown]
  - Cytokine storm [Unknown]
  - Off label use [Unknown]
  - Incorrect dose administered [Unknown]

NARRATIVE: CASE EVENT DATE: 20211224
